FAERS Safety Report 24916818 (Version 1)
Quarter: 2025Q1

REPORT INFORMATION
  Report Type: Report from Study
  Country: CA (occurrence: CA)
  Receive Date: 20250203
  Receipt Date: 20250203
  Transmission Date: 20250408
  Serious: Yes (Other)
  Sender: SANDOZ
  Company Number: CA-002147023-NVSC2022CA131317

PATIENT
  Sex: Female

DRUGS (2)
  1. HYRIMOZ [Suspect]
     Active Substance: ADALIMUMAB-ADAZ
     Indication: Ankylosing spondylitis
     Dosage: 40 MG, QW
     Route: 058
     Dates: start: 20220603
  2. HYRIMOZ [Suspect]
     Active Substance: ADALIMUMAB-ADAZ
     Dosage: 40 MG, Q2W
     Route: 058

REACTIONS (9)
  - General physical health deterioration [Unknown]
  - Neck pain [Unknown]
  - Back pain [Unknown]
  - Influenza [Unknown]
  - Illness [Unknown]
  - Pyrexia [Unknown]
  - Product substitution [Unknown]
  - Off label use [Unknown]
  - Drug effect less than expected [Unknown]
